FAERS Safety Report 18075621 (Version 1)
Quarter: 2020Q3

REPORT INFORMATION
  Report Type: Spontaneous
  Country: US (occurrence: US)
  Receive Date: 20200727
  Receipt Date: 20200727
  Transmission Date: 20201103
  Serious: No
  Sender: FDA-Public Use
  Company Number: US-ABBVIE-20K-163-3398682-00

PATIENT
  Age: 50 Year
  Sex: Female
  Weight: 63.56 kg

DRUGS (1)
  1. SYNTHROID [Suspect]
     Active Substance: LEVOTHYROXINE SODIUM
     Indication: THYROID CANCER
     Route: 048
     Dates: start: 2015

REACTIONS (3)
  - Throat irritation [Recovering/Resolving]
  - Oral discomfort [Recovering/Resolving]
  - Product odour abnormal [Recovering/Resolving]

NARRATIVE: CASE EVENT DATE: 20200417
